FAERS Safety Report 23433625 (Version 1)
Quarter: 2024Q1

REPORT INFORMATION
  Report Type: Report from Study
  Country: US (occurrence: US)
  Receive Date: 20240123
  Receipt Date: 20240123
  Transmission Date: 20240410
  Serious: Yes (Hospitalization, Other)
  Sender: FDA-Public Use
  Company Number: US-JAZZ PHARMACEUTICALS-2023-US-020574

PATIENT
  Sex: Male

DRUGS (2)
  1. EPIDIOLEX [Suspect]
     Active Substance: CANNABIDIOL
     Indication: Epilepsy
     Dosage: 3.6 MILLILITER, BID
     Route: 048
     Dates: start: 202204
  2. EPIDIOLEX [Suspect]
     Active Substance: CANNABIDIOL
     Dosage: 4 MILLILITER, BID
     Route: 048
     Dates: start: 202204

REACTIONS (5)
  - Seizure [Recovering/Resolving]
  - Seizure [Unknown]
  - Diarrhoea [Not Recovered/Not Resolved]
  - Emergency care [Unknown]
  - Off label use [Unknown]
